FAERS Safety Report 20867393 (Version 1)
Quarter: 2022Q2

REPORT INFORMATION
  Report Type: Spontaneous
  Country: US (occurrence: US)
  Receive Date: 20220524
  Receipt Date: 20220524
  Transmission Date: 20220721
  Serious: Yes (Hospitalization)
  Sender: FDA-Public Use
  Company Number: US-MYLANLABS-2022M1038428

PATIENT
  Age: 58 Year
  Sex: Female

DRUGS (12)
  1. FLUOROURACIL [Suspect]
     Active Substance: FLUOROURACIL
     Indication: Small intestine carcinoma metastatic
     Dosage: 1600 MILLIGRAM/SQ. METER, QD (CONTINUOUS INFUSION FOR 46 HOURS), INFUSION
     Dates: start: 2021
  2. FLUOROURACIL [Suspect]
     Active Substance: FLUOROURACIL
     Indication: Adenocarcinoma metastatic
     Dosage: UNK (DISCONTINUED AND RESTARTED AGAIN), INFUSION
  3. LEUCOVORIN [Suspect]
     Active Substance: LEUCOVORIN
     Indication: Small intestine carcinoma metastatic
     Dosage: 200 MILLIGRAM/SQ. METER
     Route: 065
     Dates: start: 2021
  4. LEUCOVORIN [Suspect]
     Active Substance: LEUCOVORIN
     Indication: Adenocarcinoma metastatic
     Dosage: UNK (DISCONTINUED AND RESTARTED AGAIN)
     Route: 065
  5. OXALIPLATIN [Suspect]
     Active Substance: OXALIPLATIN
     Indication: Small intestine carcinoma metastatic
     Dosage: 85 MILLIGRAM/SQ. METER
     Route: 065
     Dates: start: 2021
  6. OXALIPLATIN [Suspect]
     Active Substance: OXALIPLATIN
     Indication: Adenocarcinoma metastatic
     Dosage: UNK (DISCONTINUED AND RESTARTED AGAIN)
     Route: 065
  7. PEGFILGRASTIM [Suspect]
     Active Substance: PEGFILGRASTIM
     Indication: Prophylaxis
     Dosage: 6 MILLIGRAM
     Route: 065
     Dates: start: 2021
  8. PEGFILGRASTIM [Suspect]
     Active Substance: PEGFILGRASTIM
     Indication: Neutropenia
  9. IRINOTECAN [Suspect]
     Active Substance: IRINOTECAN
     Indication: Small intestine carcinoma metastatic
     Dosage: 165 MILLIGRAM/SQ. METER
     Route: 065
     Dates: start: 2021
  10. IRINOTECAN [Suspect]
     Active Substance: IRINOTECAN
     Indication: Adenocarcinoma metastatic
     Dosage: UNK (DISCONTINUED AND RESTARTED AGAIN)
     Route: 065
  11. BEVACIZUMAB [Suspect]
     Active Substance: BEVACIZUMAB
     Indication: Small intestine carcinoma metastatic
     Dosage: 5 MILLIGRAM/KILOGRAM
     Route: 065
     Dates: start: 2021
  12. BEVACIZUMAB [Suspect]
     Active Substance: BEVACIZUMAB
     Indication: Adenocarcinoma metastatic
     Dosage: UNK (DISCONTINUED AND RESTARTED AGAIN)
     Route: 065

REACTIONS (4)
  - Arteritis [Recovered/Resolved]
  - Carotid artery disease [Recovered/Resolved]
  - Neutropenia [Unknown]
  - Drug ineffective [Unknown]

NARRATIVE: CASE EVENT DATE: 20210601
